FAERS Safety Report 5079933-1 (Version None)
Quarter: 2006Q3

REPORT INFORMATION
  Report Type: 
  Country: None (occurrence: None)
  Receive Date: 20060809
  Receipt Date: 20060725
  Transmission Date: 20061208
  Serious: Yes (Other)
  Sender: FDA-Public Use
  Company Number: 2006001501

PATIENT
  Age: 7 Year

DRUGS (1)
  1. ERLOTINIB  HCL (TABLET) (ERLOTINIB  HCL) [Suspect]
     Indication: ASTROCYTOMA
     Dosage: 75 MG (QD), ORAL
     Route: 048
     Dates: start: 20050502

REACTIONS (4)
  - DISEASE PROGRESSION [None]
  - HYPOKALAEMIA [None]
  - NUCLEAR MAGNETIC RESONANCE IMAGING ABNORMAL [None]
  - TREATMENT NONCOMPLIANCE [None]
